FAERS Safety Report 16626019 (Version 1)
Quarter: 2019Q3

REPORT INFORMATION
  Report Type: Spontaneous
  Country: FR (occurrence: FR)
  Receive Date: 20190724
  Receipt Date: 20190724
  Transmission Date: 20191004
  Serious: Yes (Life-Threatening, Hospitalization, Other)
  Sender: FDA-Public Use
  Company Number: FR-PFIZER INC-2019310161

PATIENT
  Age: 70 Year
  Sex: Male

DRUGS (3)
  1. VINCRISTINE SULFATE. [Suspect]
     Active Substance: VINCRISTINE SULFATE
     Indication: GLIOMA
     Dosage: UNK
     Route: 042
     Dates: start: 20190516, end: 20190516
  2. CECENU [Suspect]
     Active Substance: LOMUSTINE
     Indication: GLIOMA
     Dosage: 20 DF, UNK
     Route: 048
     Dates: start: 20190509, end: 20190509
  3. NATULAN [Suspect]
     Active Substance: PROCARBAZINE HYDROCHLORIDE
     Indication: GLIOMA
     Dosage: 200 MG, 1X/DAY
     Route: 048
     Dates: start: 20190516, end: 20190523

REACTIONS (4)
  - Febrile bone marrow aplasia [Not Recovered/Not Resolved]
  - Accidental overdose [Unknown]
  - Product administration error [Unknown]
  - Toxic epidermal necrolysis [Not Recovered/Not Resolved]

NARRATIVE: CASE EVENT DATE: 20190523
